FAERS Safety Report 5022890-4 (Version None)
Quarter: 2006Q2

REPORT INFORMATION
  Report Type: 
  Country: None (occurrence: None)
  Receive Date: 20060426
  Receipt Date: 20060324
  Transmission Date: 20061013
  Serious: Yes (Other)
  Sender: FDA-Public Use
  Company Number: 2006042111

PATIENT

DRUGS (2)
  1. LYRICA [Suspect]
     Indication: PAIN
     Dosage: 150
  2. GABAPENTIN [Concomitant]

REACTIONS (2)
  - CONFUSIONAL STATE [None]
  - MEMORY IMPAIRMENT [None]
